FAERS Safety Report 23227251 (Version 1)
Quarter: 2023Q4

REPORT INFORMATION
  Report Type: Spontaneous
  Country: RU (occurrence: RU)
  Receive Date: 20231124
  Receipt Date: 20231124
  Transmission Date: 20240109
  Serious: Yes (Hospitalization, Other)
  Sender: FDA-Public Use
  Company Number: RU-ViiV Healthcare Limited-RU2023EME162948

PATIENT

DRUGS (5)
  1. LAMIVUDINE [Suspect]
     Active Substance: LAMIVUDINE
     Indication: HIV infection
     Dosage: UNK
     Dates: start: 20150616
  2. LAMIVUDINE [Suspect]
     Active Substance: LAMIVUDINE
     Dosage: UNK
     Dates: start: 20191223
  3. ZIDOVUDINE [Suspect]
     Active Substance: ZIDOVUDINE
     Indication: HIV infection
     Dosage: UNK
     Dates: start: 20150616
  4. DOLUTEGRAVIR [Suspect]
     Active Substance: DOLUTEGRAVIR
     Indication: HIV infection
     Dosage: UNK
     Dates: start: 20191223
  5. EFAVIRENZ [Suspect]
     Active Substance: EFAVIRENZ
     Indication: HIV infection
     Dosage: UNK
     Dates: start: 20150616

REACTIONS (20)
  - Brain contusion [Unknown]
  - Hepatic fibrosis [Unknown]
  - Fall [Unknown]
  - Craniocerebral injury [Unknown]
  - Contusion [Unknown]
  - Varicella zoster virus infection [Unknown]
  - COVID-19 [Unknown]
  - Onychomycosis [Unknown]
  - Oral candidiasis [Unknown]
  - Viral load increased [Unknown]
  - Rash vesicular [Unknown]
  - Fibrosis [Unknown]
  - Red blood cell count decreased [Unknown]
  - Renal cyst [Unknown]
  - Headache [Unknown]
  - Discomfort [Unknown]
  - Hyperaemia [Unknown]
  - Myopia [Unknown]
  - Astigmatism [Unknown]
  - Oral discomfort [Unknown]

NARRATIVE: CASE EVENT DATE: 20180601
